FAERS Safety Report 5180936-7 (Version None)
Quarter: 2006Q4

REPORT INFORMATION
  Report Type: 
  Country: None (occurrence: None)
  Receive Date: 20061218
  Receipt Date: 20061218
  Transmission Date: 20070319
  Serious: No
  Sender: FDA-Public Use
  Company Number: None

PATIENT
  Sex: Female
  Weight: 58 kg

DRUGS (2)
  1. CHLORPROMAZINE [Suspect]
  2. ARIPIPRAZOLE [Concomitant]

REACTIONS (2)
  - HEPATITIS [None]
  - HEPATOTOXICITY [None]
